FAERS Safety Report 5903203-X (Version None)
Quarter: 2008Q3

REPORT INFORMATION
  Report Type: 
  Country: None (occurrence: None)
  Receive Date: 20080930
  Receipt Date: 20080919
  Transmission Date: 20090109
  Serious: Yes (Hospitalization)
  Sender: FDA-Public Use
  Company Number: US-JNJFOC-20080904836

PATIENT
  Sex: Female
  Weight: 56.7 kg

DRUGS (3)
  1. FENTANYL TRANSDERMAL SYSTEM [Suspect]
     Indication: BACK PAIN
     Route: 062
  2. IMURAN [Concomitant]
  3. PREDNISONE [Concomitant]

REACTIONS (5)
  - APPLICATION SITE EROSION [None]
  - APPLICATION SITE REACTION [None]
  - ARTHRITIS [None]
  - DRUG ADMINISTERED AT INAPPROPRIATE SITE [None]
  - WRONG TECHNIQUE IN DRUG USAGE PROCESS [None]
